FAERS Safety Report 7520834-4 (Version None)
Quarter: 2011Q2

REPORT INFORMATION
  Report Type: 
  Country: None (occurrence: None)
  Receive Date: 20110603
  Receipt Date: 20100618
  Transmission Date: 20111010
  Serious: Yes (Hospitalization, Other)
  Sender: FDA-Public Use
  Company Number: US-BAYER-201021375NA

PATIENT
  Age: 24 Year
  Sex: Female
  Weight: 84.091 kg

DRUGS (8)
  1. AZITHROMYCIN [Concomitant]
     Indication: BRONCHITIS
     Route: 065
     Dates: start: 20080408, end: 20080410
  2. INDOMETHACIN [Concomitant]
     Indication: BRONCHITIS
     Route: 065
     Dates: start: 20080408, end: 20080410
  3. NAPROSYN [Concomitant]
     Route: 065
     Dates: start: 20071001, end: 20080401
  4. MOTRIN [Concomitant]
     Route: 065
     Dates: start: 20071001, end: 20080401
  5. YAZ [Suspect]
     Indication: CONTRACEPTION
     Route: 048
     Dates: start: 20071101, end: 20080401
  6. ORTHO TRI-CYCLEN [Concomitant]
     Indication: CONTRACEPTION
     Route: 048
     Dates: start: 19960601, end: 20070501
  7. FERROUS SULFATE TAB [Concomitant]
     Indication: PAIN
     Route: 048
     Dates: start: 20071001
  8. NSAID'S [Concomitant]
     Route: 065
     Dates: start: 20071001, end: 20080401

REACTIONS (4)
  - ATELECTASIS [None]
  - PLEURAL EFFUSION [None]
  - PULMONARY INFARCTION [None]
  - PULMONARY EMBOLISM [None]
